FAERS Safety Report 10703708 (Version 6)
Quarter: 2015Q3

REPORT INFORMATION
  Report Type: Report from Study
  Country: CA (occurrence: CA)
  Receive Date: 20150112
  Receipt Date: 20150903
  Transmission Date: 20151125
  Serious: Yes (Hospitalization, Other)
  Sender: FDA-Public Use
  Company Number: CA-ROCHE-1136281

PATIENT
  Age: 53 Year
  Sex: Female
  Weight: 76.7 kg

DRUGS (20)
  1. RITUXAN [Suspect]
     Active Substance: RITUXIMAB
     Indication: RHEUMATOID ARTHRITIS
     Route: 042
     Dates: start: 20101014
  2. METFORMIN [Suspect]
     Active Substance: METFORMIN HYDROCHLORIDE
     Indication: DIABETES MELLITUS
     Route: 048
     Dates: start: 2012, end: 2012
  3. VITAMIN B6 [Concomitant]
     Active Substance: PYRIDOXINE HYDROCHLORIDE
  4. ESTROGEL [Concomitant]
     Active Substance: ESTRADIOL
  5. RITUXAN [Suspect]
     Active Substance: RITUXIMAB
     Indication: MYASTHENIA GRAVIS
     Route: 042
     Dates: start: 20110504
  6. RITUXAN [Suspect]
     Active Substance: RITUXIMAB
     Indication: OFF LABEL USE
     Route: 042
     Dates: start: 20120926
  7. PROGESTERONE. [Concomitant]
     Active Substance: PROGESTERONE
  8. TESTOSTERONE. [Concomitant]
     Active Substance: TESTOSTERONE
  9. RITUXAN [Suspect]
     Active Substance: RITUXIMAB
     Dosage: LAST INFUSION ON 11/JUL/2014
     Route: 042
     Dates: start: 20130530
  10. RITUXAN [Suspect]
     Active Substance: RITUXIMAB
     Dosage: DAY 1 AND 15
     Route: 042
     Dates: start: 20150821
  11. MESTINON [Suspect]
     Active Substance: PYRIDOSTIGMINE BROMIDE
     Indication: PRODUCT USED FOR UNKNOWN INDICATION
     Route: 065
     Dates: end: 2012
  12. RITUXAN [Suspect]
     Active Substance: RITUXIMAB
     Dosage: DAY 1 AND 15
     Route: 042
     Dates: start: 20150114
  13. FOLIC ACID. [Concomitant]
     Active Substance: FOLIC ACID
  14. ACETAMINOPHEN. [Concomitant]
     Active Substance: ACETAMINOPHEN
     Indication: PREMEDICATION
     Route: 048
     Dates: start: 20110504
  15. METHOTREXATE [Concomitant]
     Active Substance: METHOTREXATE
  16. DIPHENHYDRAMINE HCL [Concomitant]
     Active Substance: DIPHENHYDRAMINE HYDROCHLORIDE
     Indication: PREMEDICATION
     Route: 048
     Dates: start: 20110504
  17. LORAZEPAM. [Concomitant]
     Active Substance: LORAZEPAM
     Route: 065
  18. VITAMIN B12 [Concomitant]
     Active Substance: CYANOCOBALAMIN
  19. CLONAZEPAM. [Concomitant]
     Active Substance: CLONAZEPAM
  20. METHYLPREDNISOLONE. [Concomitant]
     Active Substance: METHYLPREDNISOLONE
     Indication: PREMEDICATION
     Route: 042
     Dates: start: 20110504

REACTIONS (23)
  - Pain [Not Recovered/Not Resolved]
  - Diabetes mellitus [Unknown]
  - Drug intolerance [Unknown]
  - Drug ineffective [Unknown]
  - Meningitis [Unknown]
  - Fall [Recovered/Resolved]
  - Solar lentigo [Recovered/Resolved]
  - Off label use [Unknown]
  - Throat irritation [Recovering/Resolving]
  - Hordeolum [Unknown]
  - Pain [Not Recovered/Not Resolved]
  - Myasthenia gravis [Not Recovered/Not Resolved]
  - Influenza [Unknown]
  - Dyspnoea [Unknown]
  - Ill-defined disorder [Unknown]
  - Headache [Unknown]
  - Fibromyalgia [Unknown]
  - Meningitis [Recovered/Resolved]
  - Stress [Not Recovered/Not Resolved]
  - Insomnia [Unknown]
  - Myasthenia gravis [Unknown]
  - Weight increased [Unknown]
  - Arthritis [Not Recovered/Not Resolved]

NARRATIVE: CASE EVENT DATE: 2012
